FAERS Safety Report 5906700-6 (Version None)
Quarter: 2008Q3

REPORT INFORMATION
  Report Type: 
  Country: None (occurrence: None)
  Receive Date: 20080930
  Receipt Date: 20080922
  Transmission Date: 20090109
  Serious: Yes (Hospitalization)
  Sender: FDA-Public Use
  Company Number: DSA_32402_2008

PATIENT
  Sex: Female

DRUGS (1)
  1. LORAZEPAM [Suspect]
     Dosage: (30 DF ORAL)
     Route: 048
     Dates: start: 20080906, end: 20080906

REACTIONS (6)
  - DIPLOPIA [None]
  - DRUG ABUSE [None]
  - HYPERHIDROSIS [None]
  - INTENTIONAL OVERDOSE [None]
  - MYDRIASIS [None]
  - SALIVARY HYPERSECRETION [None]
